FAERS Safety Report 15114282 (Version 1)
Quarter: 2018Q2

REPORT INFORMATION
  Report Type: Spontaneous
  Country: US (occurrence: US)
  Receive Date: 20180612
  Receipt Date: 20180612
  Transmission Date: 20180711
  Serious: Yes (Hospitalization)
  Sender: FDA-Public Use
  Company Number: None

PATIENT
  Age: 76 Year
  Sex: Female
  Weight: 68.1 kg

DRUGS (11)
  1. DULCOLAX NOS [Concomitant]
     Active Substance: BISACODYL OR DOCUSATE SODIUM
  2. TUMS [Concomitant]
     Active Substance: CALCIUM CARBONATE
  3. VITAMIN D [Concomitant]
     Active Substance: CHOLECALCIFEROL
  4. ASPIRIN. [Suspect]
     Active Substance: ASPIRIN
     Indication: CORONARY ARTERY DISEASE
     Dosage: CHRONIC USE
     Route: 048
  5. AMLODIPINE [Concomitant]
     Active Substance: AMLODIPINE BESYLATE
  6. APAP [Concomitant]
     Active Substance: ACETAMINOPHEN
  7. BUMEX [Concomitant]
     Active Substance: BUMETANIDE
  8. LIPITOR [Concomitant]
     Active Substance: ATORVASTATIN CALCIUM
  9. SANDIMMUNE [Concomitant]
     Active Substance: CYCLOSPORINE
  10. PREDNISONE. [Suspect]
     Active Substance: PREDNISONE
     Indication: RENAL TRANSPLANT
     Dosage: ?          OTHER FREQUENCY:QAM;  CHRONIC USE?
     Route: 048
  11. AMIODARONE [Concomitant]
     Active Substance: AMIODARONE

REACTIONS (6)
  - Shock haemorrhagic [None]
  - Haemorrhagic anaemia [None]
  - Diverticulum intestinal haemorrhagic [None]
  - Ulcer haemorrhage [None]
  - Lower gastrointestinal haemorrhage [None]
  - Post procedural haemorrhage [None]

NARRATIVE: CASE EVENT DATE: 20180325
